APPROVED DRUG PRODUCT: ZANTAC 150
Active Ingredient: RANITIDINE HYDROCHLORIDE
Strength: EQ 150MG BASE **Federal Register determination that product was not discontinued or withdrawn for safety or effectiveness reasons**
Dosage Form/Route: CAPSULE;ORAL
Application: N020095 | Product #001
Applicant: GLAXOSMITHKLINE
Approved: Mar 8, 1994 | RLD: Yes | RS: No | Type: DISCN